FAERS Safety Report 5545262-2 (Version None)
Quarter: 2007Q4

REPORT INFORMATION
  Report Type: 
  Country: None (occurrence: None)
  Receive Date: 20071211
  Receipt Date: 20071130
  Transmission Date: 20080405
  Serious: Yes (Hospitalization)
  Sender: FDA-Public Use
  Company Number: PHBS2007TR18992

PATIENT
  Weight: 79 kg

DRUGS (3)
  1. STARLIX [Suspect]
     Dosage: UNK, TID
     Route: 048
  2. VASOXEN [Suspect]
     Dosage: UNK, QD
  3. INSULIN [Concomitant]

REACTIONS (1)
  - THROMBOCYTOPENIA [None]
